FAERS Safety Report 24634709 (Version 3)
Quarter: 2025Q3

REPORT INFORMATION
  Report Type: Report from Study
  Country: JP (occurrence: JP)
  Receive Date: 20241119
  Receipt Date: 20250722
  Transmission Date: 20251020
  Serious: Yes (Other)
  Sender: ABBVIE
  Company Number: JP-ABBVIE-5944289

PATIENT
  Age: 80 Year
  Sex: Female

DRUGS (1)
  1. VYALEV [Suspect]
     Active Substance: FOSCARBIDOPA\FOSLEVODOPA
     Indication: Parkinson^s disease
     Route: 058
     Dates: start: 20240828

REACTIONS (8)
  - Carpal tunnel syndrome [Unknown]
  - Hyperhidrosis [Unknown]
  - Infusion site scar [Unknown]
  - Infusion site reaction [Unknown]
  - Malaise [Recovered/Resolved]
  - Infusion site discharge [Unknown]
  - Mobility decreased [Unknown]
  - Infusion site reaction [Not Recovered/Not Resolved]

NARRATIVE: CASE EVENT DATE: 20240101
